FAERS Safety Report 4345148-5 (Version None)
Quarter: 2004Q2

REPORT INFORMATION
  Report Type: 
  Country: None (occurrence: None)
  Receive Date: 20040421
  Receipt Date: 20040421
  Transmission Date: 20050107
  Serious: Yes (Other)
  Sender: FDA-Public Use
  Company Number: None

PATIENT
  Age: 32 Year
  Sex: Male
  Weight: 81.6475 kg

DRUGS (1)
  1. CIPROFLOXACIN [Suspect]
     Indication: EPIDIDYMITIS
     Dosage: 500MG TWICE DAILY ORAL
     Route: 048
     Dates: start: 20040409, end: 20040414

REACTIONS (5)
  - ANXIETY [None]
  - HYPOAESTHESIA [None]
  - TENDONITIS [None]
  - VISION BLURRED [None]
  - VITREOUS FLOATERS [None]
